FAERS Safety Report 18607369 (Version 2)
Quarter: 2021Q1

REPORT INFORMATION
  Report Type: Spontaneous
  Country: US (occurrence: US)
  Receive Date: 20201211
  Receipt Date: 20210125
  Transmission Date: 20210419
  Serious: No
  Sender: FDA-Public Use
  Company Number: US-PFIZER INC-2020488475

PATIENT
  Age: 41 Year
  Sex: Female

DRUGS (2)
  1. XELJANZ XR [Suspect]
     Active Substance: TOFACITINIB CITRATE
     Indication: RHEUMATOID ARTHRITIS
     Dosage: 11 MG, 1X/DAY
     Route: 048
     Dates: start: 2017
  2. XELJANZ XR [Suspect]
     Active Substance: TOFACITINIB CITRATE
     Dosage: 11 MG, 1X/DAY
     Route: 048
     Dates: end: 202008

REACTIONS (7)
  - Peripheral swelling [Unknown]
  - Muscular weakness [Unknown]
  - Illness [Recovering/Resolving]
  - Depression [Unknown]
  - Product dose omission issue [Unknown]
  - Discouragement [Unknown]
  - Exposure to SARS-CoV-2 [Unknown]
